FAERS Safety Report 12205509 (Version 1)
Quarter: 2016Q1

REPORT INFORMATION
  Report Type: Spontaneous
  Country: DE (occurrence: DE)
  Receive Date: 20160323
  Receipt Date: 20160323
  Transmission Date: 20160526
  Serious: Yes (Other)
  Sender: FDA-Public Use
  Company Number: GXKR2016DE001441

PATIENT

DRUGS (2)
  1. THIAMAZOLE [Suspect]
     Active Substance: METHIMAZOLE
     Indication: BASEDOW^S DISEASE
     Dosage: DOSAGE INCREASED DURING PREGNANCY, HIGHEST DOSAGE 15 MG/D
     Route: 064
     Dates: start: 20140913, end: 20150611
  2. FOLSAEURE [Concomitant]
     Active Substance: FOLIC ACID
     Indication: PROPHYLAXIS OF NEURAL TUBE DEFECT
     Dosage: 0.8 [MG/D ]; GW 0-12
     Route: 064

REACTIONS (2)
  - Thyroid stimulating immunoglobulin [Recovered/Resolved]
  - Blood thyroid stimulating hormone increased [Recovered/Resolved]
